FAERS Safety Report 18992457 (Version 1)
Quarter: 2021Q1

REPORT INFORMATION
  Report Type: Spontaneous
  Country: US (occurrence: US)
  Receive Date: 20210310
  Receipt Date: 20210310
  Transmission Date: 20210420
  Serious: No
  Sender: FDA-Public Use
  Company Number: US-ELI_LILLY_AND_COMPANY-US202102004970

PATIENT
  Sex: Male

DRUGS (3)
  1. HUMALOG [Suspect]
     Active Substance: INSULIN LISPRO
     Indication: PRODUCT USED FOR UNKNOWN INDICATION
     Dosage: 8 U, PRN
     Route: 065
  2. LANTUS [Concomitant]
     Active Substance: INSULIN GLARGINE
     Dosage: 70 U
  3. LANTUS [Concomitant]
     Active Substance: INSULIN GLARGINE
     Indication: PRODUCT USED FOR UNKNOWN INDICATION
     Dosage: 55 U, EACH MORNING

REACTIONS (3)
  - Blood glucose increased [Unknown]
  - Drug ineffective [Unknown]
  - Product storage error [Unknown]
